FAERS Safety Report 9306867 (Version 2)
Quarter: 2013Q2

REPORT INFORMATION
  Report Type: Spontaneous
  Country: GB (occurrence: GB)
  Receive Date: 20130523
  Receipt Date: 20130530
  Transmission Date: 20140414
  Serious: Yes (Other)
  Sender: FDA-Public Use
  Company Number: PHHY2013GB050198

PATIENT
  Sex: Male

DRUGS (5)
  1. CANDESARTAN CILEXETIL [Suspect]
     Route: 048
  2. ACETYLSALICYLIC ACID [Suspect]
     Dosage: UNK UKN, UNK
  3. BISOPROLOL FUMARATE [Suspect]
  4. ALLOPURINOL [Suspect]
  5. TICAGRELOR [Suspect]
     Route: 048

REACTIONS (2)
  - Abdominal discomfort [Unknown]
  - Loss of consciousness [Unknown]
